FAERS Safety Report 20921844 (Version 1)
Quarter: 2022Q2

REPORT INFORMATION
  Report Type: Spontaneous
  Country: US (occurrence: US)
  Receive Date: 20220606
  Receipt Date: 20220606
  Transmission Date: 20220721
  Serious: No
  Sender: FDA-Public Use
  Company Number: US-BoehringerIngelheim-2022-BI-174832

PATIENT
  Age: 67 Year
  Sex: Female

DRUGS (1)
  1. GILOTRIF [Suspect]
     Active Substance: AFATINIB
     Indication: Lung neoplasm malignant
     Dates: start: 202205

REACTIONS (3)
  - Oropharyngeal pain [Unknown]
  - Dry eye [Unknown]
  - Eye pain [Unknown]

NARRATIVE: CASE EVENT DATE: 20220101
